FAERS Safety Report 16459998 (Version 1)
Quarter: 2019Q2

REPORT INFORMATION
  Report Type: Spontaneous
  Country: US (occurrence: US)
  Receive Date: 20190510
  Receipt Date: 20190510
  Transmission Date: 20190711
  Serious: Yes (Hospitalization)
  Sender: FDA-Public Use
  Company Number: None

PATIENT
  Age: 42 Year
  Sex: Male

DRUGS (10)
  1. ODANSETRON 4MG [Concomitant]
  2. ALPRAZOLAM 2MG [Concomitant]
     Active Substance: ALPRAZOLAM
  3. METHOCARBAM 500MG [Concomitant]
  4. PANTOPRAZOLE 40MG [Concomitant]
     Active Substance: PANTOPRAZOLE SODIUM
  5. RECITALOPRAM 20MG [Concomitant]
  6. PROVENTIL HFA [Concomitant]
     Active Substance: ALBUTEROL SULFATE
  7. STELARA [Suspect]
     Active Substance: USTEKINUMAB
     Indication: PSORIASIS
     Dosage: ?          OTHER FREQUENCY:EVERY 12 WEEKS;?
     Route: 065
     Dates: start: 20181218
  8. CLOUTASOL OINT 2.05% [Concomitant]
  9. ALPRAZALAM 0.5MG [Concomitant]
  10. DICYCLOMINE 20MG [Concomitant]

REACTIONS (2)
  - Gastric ulcer [None]
  - Nasopharyngitis [None]

NARRATIVE: CASE EVENT DATE: 20190502
